FAERS Safety Report 8989929 (Version 2)
Quarter: 2013Q1

REPORT INFORMATION
  Report Type: Spontaneous
  Country: BE (occurrence: BE)
  Receive Date: 20121228
  Receipt Date: 20130117
  Transmission Date: 20140127
  Serious: Yes (Hospitalization)
  Sender: FDA-Public Use
  Company Number: BE-GLAXOSMITHKLINE-B0855386A

PATIENT
  Sex: Male

DRUGS (2)
  1. AVAMYS [Suspect]
     Indication: SINUSITIS
     Route: 045
  2. AMOXICILLIN [Suspect]
     Indication: PRODUCT USED FOR UNKNOWN INDICATION
     Route: 065

REACTIONS (7)
  - Anaphylactic shock [Recovered/Resolved]
  - Paraesthesia [Unknown]
  - Paraesthesia oral [Unknown]
  - Dyspnoea [Unknown]
  - Lip swelling [Unknown]
  - Swelling face [Unknown]
  - Local swelling [Unknown]
